FAERS Safety Report 5114961-9 (Version None)
Quarter: 2006Q3

REPORT INFORMATION
  Report Type: 
  Country: None (occurrence: None)
  Receive Date: 20060921
  Receipt Date: 20060814
  Transmission Date: 20061208
  Serious: Yes (Hospitalization)
  Sender: FDA-Public Use
  Company Number: 2006RR-03445

PATIENT
  Age: 95 Year
  Sex: Female

DRUGS (5)
  1. ACETAMINOPHEN AND CODEINE PHOSPHATE (CODEINE PHOSPHATE, ACETAMINOPHEN) [Suspect]
     Indication: ANALGESIC EFFECT
     Dosage: 2 DF,QID, ORAL
     Route: 048
     Dates: start: 20060301, end: 20060601
  2. ASPIRIN [Concomitant]
  3. CALCICHEW D3 [Concomitant]
  4. MOVICOL [Concomitant]
  5. TRAMADOL HCL [Concomitant]

REACTIONS (1)
  - FAECALOMA [None]
